FAERS Safety Report 5031707-3 (Version None)
Quarter: 2006Q2

REPORT INFORMATION
  Report Type: 
  Country: None (occurrence: None)
  Receive Date: 20060616
  Receipt Date: 20060530
  Transmission Date: 20061013
  Serious: Yes (Other)
  Sender: FDA-Public Use
  Company Number: US200605006804

PATIENT
  Age: 45 Year
  Sex: Male

DRUGS (2)
  1. STRATTERA [Suspect]
     Indication: ATTENTION DEFICIT/HYPERACTIVITY DISORDER
     Dosage: ORAL
     Route: 048
  2. LEXAPRO /USA/ (ESCITALOPRAM) [Concomitant]

REACTIONS (2)
  - LIVER DISORDER [None]
  - THROMBOSIS [None]
